FAERS Safety Report 7469137-7 (Version None)
Quarter: 2011Q2

REPORT INFORMATION
  Report Type: 
  Country: None (occurrence: None)
  Receive Date: 20110510
  Receipt Date: 20110406
  Transmission Date: 20111010
  Serious: Yes (Hospitalization, Other)
  Sender: FDA-Public Use
  Company Number: US-BAYER-201014953NA

PATIENT
  Age: 30 Year
  Sex: Female
  Weight: 81.633 kg

DRUGS (7)
  1. PRINIVIL [Concomitant]
     Indication: BLOOD PRESSURE INCREASED
     Dosage: UNK
     Dates: start: 20010101
  2. NASONEX [Concomitant]
     Indication: MULTIPLE ALLERGIES
     Dosage: UNK
  3. NSAID'S [Concomitant]
  4. ALLEGRA [Concomitant]
     Indication: MULTIPLE ALLERGIES
     Dosage: UNK
     Dates: start: 20030101, end: 20080101
  5. PATANOL [Concomitant]
     Indication: MULTIPLE ALLERGIES
     Dosage: UNK
     Dates: start: 20030101, end: 20080101
  6. YASMIN [Suspect]
     Indication: ENDOMETRIOSIS
     Dosage: UNK
     Route: 048
     Dates: start: 20021101, end: 20040724
  7. ZYRTEC [Concomitant]
     Indication: MULTIPLE ALLERGIES
     Dosage: UNK
     Dates: start: 20030101, end: 20080101

REACTIONS (1)
  - CHOLECYSTITIS CHRONIC [None]
